FAERS Safety Report 23280077 (Version 2)
Quarter: 2023Q4

REPORT INFORMATION
  Report Type: Spontaneous
  Country: US (occurrence: US)
  Receive Date: 20231210
  Receipt Date: 20231229
  Transmission Date: 20240110
  Serious: No
  Sender: FDA-Public Use
  Company Number: US-GSKCCFUS-Case-01872688_AE-104556

PATIENT
  Sex: Male

DRUGS (1)
  1. BREO ELLIPTA [Suspect]
     Active Substance: FLUTICASONE FUROATE\VILANTEROL TRIFENATATE
     Indication: Product used for unknown indication
     Dosage: UNK, 100/25 MCG

REACTIONS (5)
  - Cough [Not Recovered/Not Resolved]
  - Rhinorrhoea [Not Recovered/Not Resolved]
  - Increased upper airway secretion [Unknown]
  - Increased bronchial secretion [Unknown]
  - Product complaint [Unknown]
